FAERS Safety Report 10742037 (Version 1)
Quarter: 2015Q1

REPORT INFORMATION
  Report Type: Spontaneous
  Country: US (occurrence: None)
  Receive Date: 20150123
  Receipt Date: 20150123
  Transmission Date: 20150721
  Serious: Yes (Disabling)
  Sender: FDA-Public Use
  Company Number: None

PATIENT
  Age: 17 Year
  Sex: Male
  Weight: 56.7 kg

DRUGS (5)
  1. HUMALOG [Concomitant]
     Active Substance: INSULIN LISPRO
  2. LANTUS [Concomitant]
     Active Substance: INSULIN GLARGINE
  3. BUSPIRONE [Concomitant]
     Active Substance: BUSPIRONE HYDROCHLORIDE
  4. LORAZEPAM. [Concomitant]
     Active Substance: LORAZEPAM
  5. FLUOXETINE [Suspect]
     Active Substance: FLUOXETINE\FLUOXETINE HYDROCHLORIDE
     Indication: OBSESSIVE-COMPULSIVE DISORDER
     Dosage: 1 TABLET
     Route: 048
     Dates: start: 20141119, end: 20141128

REACTIONS (18)
  - Depression [None]
  - Blood glucose increased [None]
  - Decreased appetite [None]
  - Mydriasis [None]
  - Heart rate irregular [None]
  - Anxiety [None]
  - Heart rate increased [None]
  - Headache [None]
  - Panic attack [None]
  - Hyperhidrosis [None]
  - Restlessness [None]
  - Asthenia [None]
  - Memory impairment [None]
  - Agitation [None]
  - Insomnia [None]
  - Tremor [None]
  - Disturbance in attention [None]
  - Feeling abnormal [None]

NARRATIVE: CASE EVENT DATE: 20141128
